FAERS Safety Report 8487080 (Version 4)
Quarter: 2013Q1

REPORT INFORMATION
  Report Type: Spontaneous
  Country: US (occurrence: US)
  Receive Date: 20120402
  Receipt Date: 20130103
  Transmission Date: 20140127
  Serious: Yes (Hospitalization, Congenital Anomaly, Other)
  Sender: FDA-Public Use
  Company Number: US-PFIZER INC-2012079485

PATIENT
  Sex: Male

DRUGS (9)
  1. ZOLOFT [Suspect]
     Indication: DEPRESSION
     Dosage: 50 MG, 1X/DAY
     Route: 064
     Dates: start: 2003, end: 2006
  2. PRENATAL VITAMINS [Concomitant]
     Dosage: UNK
     Route: 064
  3. LEVOTHROID [Concomitant]
     Dosage: UNK
     Route: 064
  4. HYDROCORTISONE [Concomitant]
     Dosage: UNK
     Route: 064
  5. PEPCID [Concomitant]
     Dosage: UNK
     Route: 064
  6. FOLIC ACID [Concomitant]
     Dosage: UNK
     Route: 064
  7. SYNTHROID [Concomitant]
     Dosage: UNK
     Route: 064
  8. IRON [Concomitant]
     Dosage: UNK
     Route: 064
  9. REGLAN [Concomitant]
     Dosage: UNK
     Route: 064

REACTIONS (3)
  - Maternal exposure timing unspecified [Unknown]
  - Craniosynostosis [Unknown]
  - Ear malformation [Unknown]
